FAERS Safety Report 17510247 (Version 1)
Quarter: 2020Q1

REPORT INFORMATION
  Report Type: Spontaneous
  Country: US (occurrence: US)
  Receive Date: 20200306
  Receipt Date: 20200306
  Transmission Date: 20200409
  Serious: Yes (Disabling)
  Sender: FDA-Public Use
  Company Number: None

PATIENT
  Age: 77 Year
  Sex: Female
  Weight: 63 kg

DRUGS (2)
  1. NATURE-THROID [Suspect]
     Active Substance: THYROID, PORCINE
     Indication: HYPOTHYROIDISM
     Dosage: ?          QUANTITY:90 TABLET(S);?
     Route: 048
     Dates: start: 20200130, end: 20200303
  2. ARMOUR THYROID [Suspect]
     Active Substance: THYROID, PORCINE

REACTIONS (4)
  - Hypokinesia [None]
  - Peripheral swelling [None]
  - Alopecia [None]
  - Pain [None]

NARRATIVE: CASE EVENT DATE: 20200226
